FAERS Safety Report 14345578 (Version 1)
Quarter: 2018Q1

REPORT INFORMATION
  Report Type: Spontaneous
  Country: JP (occurrence: JP)
  Receive Date: 20180103
  Receipt Date: 20180103
  Transmission Date: 20180509
  Serious: Yes (Hospitalization, Other)
  Sender: FDA-Public Use
  Company Number: PHJP2016JP030139

PATIENT
  Age: 51 Year
  Sex: Female

DRUGS (9)
  1. LYRICA [Concomitant]
     Active Substance: PREGABALIN
     Indication: PRODUCT USED FOR UNKNOWN INDICATION
     Dosage: UNK
     Route: 065
     Dates: start: 20160106
  2. MEVALOTIN [Concomitant]
     Active Substance: PRAVASTATIN SODIUM
     Indication: PRODUCT USED FOR UNKNOWN INDICATION
     Dosage: UNK
     Route: 065
     Dates: start: 20160319
  3. PATANOL [Concomitant]
     Active Substance: OLOPATADINE HYDROCHLORIDE
     Indication: CONJUNCTIVITIS
     Dosage: 4 DF, UNK
     Route: 047
  4. ANTEBATE [Concomitant]
     Active Substance: BETAMETHASONE DIPROPIONATE
     Indication: XERODERMA
     Dosage: QS
     Route: 065
  5. SANCOBA [Concomitant]
     Active Substance: CYANOCOBALAMIN
     Indication: CONJUNCTIVITIS
     Dosage: 4 DF, UNK
     Route: 047
  6. GILENYA [Suspect]
     Active Substance: FINGOLIMOD HYDROCHLORIDE
     Dosage: 0.5 MG, QD
     Route: 048
     Dates: start: 20160407
  7. MYSLEE [Concomitant]
     Active Substance: ZOLPIDEM TARTRATE
     Indication: INSOMNIA
     Dosage: 5 MG, UNK
     Route: 048
  8. GILENYA [Suspect]
     Active Substance: FINGOLIMOD HYDROCHLORIDE
     Indication: MULTIPLE SCLEROSIS
     Dosage: 0.5 MG, UNK
     Route: 048
     Dates: start: 20120411, end: 20160113
  9. MOHRUS [Concomitant]
     Active Substance: KETOPROFEN
     Indication: ARTHRITIS
     Dosage: 40 MG, UNK
     Route: 061

REACTIONS (10)
  - Spinal myelogram abnormal [Recovering/Resolving]
  - Decreased appetite [Recovering/Resolving]
  - Central nervous system lesion [Recovering/Resolving]
  - Sensory disturbance [Recovering/Resolving]
  - Rebound effect [Unknown]
  - Multiple sclerosis relapse [Recovered/Resolved]
  - Hyperreflexia [Recovering/Resolving]
  - Nausea [Recovering/Resolving]
  - Herpes zoster [Recovered/Resolved]
  - Hypoaesthesia [Recovering/Resolving]

NARRATIVE: CASE EVENT DATE: 20151213
